FAERS Safety Report 7424225-6 (Version None)
Quarter: 2011Q2

REPORT INFORMATION
  Report Type: 
  Country: None (occurrence: None)
  Receive Date: 20110411
  Receipt Date: 20110401
  Transmission Date: 20111010
  Serious: Yes (Other)
  Sender: FDA-Public Use
  Company Number: 2011IP0000056

PATIENT
  Age: 46 Year
  Sex: Male

DRUGS (1)
  1. BEPREVE [Suspect]
     Indication: EYE PRURITUS
     Dosage: 1 GTT BID, OPH
     Route: 047
     Dates: start: 20110301, end: 20110301

REACTIONS (1)
  - KERATITIS [None]
